FAERS Safety Report 13648667 (Version 1)
Quarter: 2017Q2

REPORT INFORMATION
  Report Type: Spontaneous
  Country: TW (occurrence: TW)
  Receive Date: 20170613
  Receipt Date: 20170613
  Transmission Date: 20170830
  Serious: Yes (Hospitalization, Other)
  Sender: FDA-Public Use
  Company Number: TW-MYLANLABS-2017M1035066

PATIENT

DRUGS (9)
  1. CEFOPERAZONE [Suspect]
     Active Substance: CEFOPERAZONE
     Indication: CHOLANGITIS
     Dosage: FOR 6MONTHS
     Route: 065
  2. CEFOPERAZONE [Suspect]
     Active Substance: CEFOPERAZONE
     Indication: CITROBACTER INFECTION
     Dosage: FOR 6MONTHS
     Route: 065
  3. ASCORBIC ACID. [Suspect]
     Active Substance: ASCORBIC ACID
     Indication: PRODUCT USED FOR UNKNOWN INDICATION
     Dosage: HAD BEEN RECEIVING FOR TWO YEARS
     Route: 065
  4. CEFOPERAZONE [Suspect]
     Active Substance: CEFOPERAZONE
     Indication: ENTEROCOCCAL INFECTION
     Dosage: FOR 6MONTHS
     Route: 065
  5. CEFOPERAZONE [Suspect]
     Active Substance: CEFOPERAZONE
     Indication: ESCHERICHIA INFECTION
     Dosage: FOR 6MONTHS
     Route: 065
  6. FLUOROURACIL. [Concomitant]
     Active Substance: FLUOROURACIL
     Indication: GALLBLADDER CANCER
     Dosage: OVER SIX CYCLES
     Route: 065
  7. CISPLATIN. [Suspect]
     Active Substance: CISPLATIN
     Indication: GALLBLADDER CANCER
     Dosage: OVER SIX CYCLES
     Route: 065
  8. CEFOPERAZONE [Suspect]
     Active Substance: CEFOPERAZONE
     Indication: KLEBSIELLA INFECTION
     Dosage: FOR 6MONTHS
     Route: 065
  9. CEFOPERAZONE [Suspect]
     Active Substance: CEFOPERAZONE
     Indication: BETA HAEMOLYTIC STREPTOCOCCAL INFECTION
     Dosage: FOR 6MONTHS
     Route: 065

REACTIONS (3)
  - Nephropathy [Unknown]
  - End stage renal disease [Unknown]
  - Acute kidney injury [Unknown]
